FAERS Safety Report 13164193 (Version 1)
Quarter: 2017Q1

REPORT INFORMATION
  Report Type: Spontaneous
  Country: MK (occurrence: MK)
  Receive Date: 20170130
  Receipt Date: 20170130
  Transmission Date: 20170428
  Serious: Yes (Other)
  Sender: FDA-Public Use
  Company Number: MK-BAYER-2017-016682

PATIENT
  Age: 66 Year
  Sex: Male
  Weight: 70 kg

DRUGS (1)
  1. ULTRAVIST [Suspect]
     Active Substance: IOPROMIDE
     Indication: DIAGNOSTIC PROCEDURE
     Dosage: UNK, ONCE
     Dates: start: 20161201, end: 20161201

REACTIONS (5)
  - Vomiting [None]
  - Dyspnoea [None]
  - Asphyxia [None]
  - Dizziness [None]
  - Vertigo [None]
